FAERS Safety Report 6379758-0 (Version None)
Quarter: 2009Q3

REPORT INFORMATION
  Report Type: 
  Country: None (occurrence: None)
  Receive Date: 20090928
  Receipt Date: 20090914
  Transmission Date: 20100115
  Serious: Yes (Hospitalization)
  Sender: FDA-Public Use
  Company Number: FR-MYLANLABS-2009S1016076

PATIENT
  Age: 45 Year
  Sex: Male

DRUGS (2)
  1. LITHIUM [Suspect]
     Indication: SUICIDE ATTEMPT
     Dosage: DOSAGE NOT STATED
     Route: 048
  2. METFORMIN HYDROCHLORIDE [Suspect]
     Indication: SUICIDE ATTEMPT
     Dosage: DOSAGE NOT STATED
     Route: 048

REACTIONS (2)
  - LACTIC ACIDOSIS [None]
  - RENAL FAILURE ACUTE [None]
